FAERS Safety Report 13568630 (Version 1)
Quarter: 2017Q2

REPORT INFORMATION
  Report Type: Spontaneous
  Country: US (occurrence: US)
  Receive Date: 20170522
  Receipt Date: 20170522
  Transmission Date: 20170830
  Serious: No
  Sender: FDA-Public Use
  Company Number: None

PATIENT
  Sex: Male
  Weight: 24.75 kg

DRUGS (2)
  1. MONTELUKAST [Suspect]
     Active Substance: MONTELUKAST SODIUM
     Indication: ASTHMA
     Route: 048
     Dates: start: 20141101, end: 20170522
  2. ALBUTEROL RESCUE INHALER [Concomitant]

REACTIONS (8)
  - Somnambulism [None]
  - Abnormal behaviour [None]
  - Crying [None]
  - Night sweats [None]
  - Sleep disorder [None]
  - Anger [None]
  - Insomnia [None]
  - Mood swings [None]
